FAERS Safety Report 7995790-5 (Version None)
Quarter: 2011Q4

REPORT INFORMATION
  Report Type: 
  Country: None (occurrence: None)
  Receive Date: 20111220
  Receipt Date: 20111213
  Transmission Date: 20120403
  Serious: Yes (Death)
  Sender: FDA-Public Use
  Company Number: US-MYLANLABS-2009S1004006

PATIENT
  Age: 35 Year
  Sex: Female
  Weight: 52.62 kg

DRUGS (4)
  1. ALPRAZOLAM [Suspect]
     Route: 048
  2. FENTANYL-100 [Suspect]
     Indication: PROCEDURAL PAIN
     Dosage: EVERY 72 HOURS
     Route: 062
     Dates: start: 20060420, end: 20060421
  3. MORPHINE [Suspect]
  4. TEMAZEPAM [Concomitant]
     Indication: INSOMNIA
     Route: 048

REACTIONS (1)
  - TOXICITY TO VARIOUS AGENTS [None]
